FAERS Safety Report 16839236 (Version 1)
Quarter: 2019Q3

REPORT INFORMATION
  Report Type: Spontaneous
  Country: GB (occurrence: GB)
  Receive Date: 20190923
  Receipt Date: 20190923
  Transmission Date: 20191005
  Serious: Yes (Other)
  Sender: FDA-Public Use
  Company Number: GB-THROMBOGENICS INC-GB-O18021-19-000987

PATIENT

DRUGS (1)
  1. JETREA [Suspect]
     Active Substance: OCRIPLASMIN
     Indication: VITREOUS ADHESIONS
     Dosage: UNK, SINGLE
     Route: 031

REACTIONS (2)
  - Macular detachment [Not Recovered/Not Resolved]
  - Subretinal fluid [Unknown]
